FAERS Safety Report 17958620 (Version 1)
Quarter: 2020Q2

REPORT INFORMATION
  Report Type: Spontaneous
  Country: US (occurrence: US)
  Receive Date: 20200630
  Receipt Date: 20200630
  Transmission Date: 20200714
  Serious: No
  Sender: FDA-Public Use
  Company Number: US-ELI_LILLY_AND_COMPANY-US202006008753

PATIENT
  Sex: Male

DRUGS (7)
  1. HUMALOG [Suspect]
     Active Substance: INSULIN LISPRO
     Indication: TYPE 1 DIABETES MELLITUS
     Dosage: UNK, PRN
     Route: 058
  2. HUMALOG [Suspect]
     Active Substance: INSULIN LISPRO
     Indication: TYPE 1 DIABETES MELLITUS
     Dosage: UNK, PRN
     Route: 058
  3. LANTUS [Concomitant]
     Active Substance: INSULIN GLARGINE
     Indication: TYPE 1 DIABETES MELLITUS
     Dosage: UNK, PRN
  4. NOVOLIN N [Concomitant]
     Active Substance: INSULIN HUMAN
     Indication: TYPE 1 DIABETES MELLITUS
     Dosage: UNK, PRN
  5. NOVOLOG [Concomitant]
     Active Substance: INSULIN ASPART
     Indication: TYPE 1 DIABETES MELLITUS
     Dosage: UNK, PRN
  6. LISINOPRIL. [Concomitant]
     Active Substance: LISINOPRIL
     Indication: PRODUCT USED FOR UNKNOWN INDICATION
  7. NOVOLIN R [Suspect]
     Active Substance: INSULIN HUMAN
     Indication: TYPE 1 DIABETES MELLITUS
     Dosage: UNK, PRN
     Route: 058

REACTIONS (4)
  - Impaired gastric emptying [Unknown]
  - Blood glucose abnormal [Unknown]
  - Blood glucose increased [Unknown]
  - Blood glucose decreased [Unknown]
